FAERS Safety Report 5040033-8 (Version None)
Quarter: 2006Q2

REPORT INFORMATION
  Report Type: 
  Country: None (occurrence: None)
  Receive Date: 20060630
  Receipt Date: 20060623
  Transmission Date: 20061013
  Serious: Yes (Hospitalization, Disabling, Other)
  Sender: FDA-Public Use
  Company Number: US-JNJFOC-20060204532

PATIENT
  Sex: Female
  Weight: 92.2 kg

DRUGS (25)
  1. REMICADE [Suspect]
     Route: 042
  2. REMICADE [Suspect]
     Route: 042
  3. REMICADE [Suspect]
     Route: 042
  4. REMICADE [Suspect]
     Indication: RHEUMATOID ARTHRITIS
     Route: 042
  5. MIRAPEX [Concomitant]
  6. MIRAPEX [Concomitant]
     Indication: RESTLESS LEGS SYNDROME
  7. ALBUTEROL [Concomitant]
     Dosage: SOLUTION
  8. ALBUTEROL [Concomitant]
     Dosage: INHALER
  9. OXYCODONE AND ACETAMINOPHEN [Concomitant]
     Dosage: 5/325
  10. CLONAZEPAM [Concomitant]
  11. IBUPROFEN [Concomitant]
  12. PREDNISONE [Concomitant]
  13. PHENAZOPYRIDINE [Concomitant]
  14. PRILOSEC [Concomitant]
  15. ZOLOFT [Concomitant]
  16. CIPRO [Concomitant]
  17. CIPRO [Concomitant]
  18. SULFAMETHOXAZOLE [Concomitant]
  19. MACROBID [Concomitant]
  20. ZYBAN [Concomitant]
  21. COMBIVENT [Concomitant]
  22. AMOX TR-K CLV [Concomitant]
     Dosage: 500-125 MG
  23. FUROSEMIDE [Concomitant]
  24. NAPROXEN [Concomitant]
  25. DOXYCYCLINE [Concomitant]

REACTIONS (9)
  - ANAEMIA [None]
  - CHRONIC OBSTRUCTIVE PULMONARY DISEASE [None]
  - DEMYELINATING POLYNEUROPATHY [None]
  - DRUG INEFFECTIVE [None]
  - GUILLAIN-BARRE SYNDROME [None]
  - NEUROGENIC BLADDER [None]
  - PYELONEPHRITIS [None]
  - THORACIC OUTLET SYNDROME [None]
  - URINARY TRACT INFECTION [None]
